FAERS Safety Report 5904393-5 (Version None)
Quarter: 2008Q3

REPORT INFORMATION
  Report Type: 
  Country: None (occurrence: None)
  Receive Date: 20080930
  Receipt Date: 20080930
  Transmission Date: 20090109
  Serious: Yes (Hospitalization)
  Sender: FDA-Public Use
  Company Number: None

PATIENT
  Sex: Female
  Weight: 15.9 kg

DRUGS (4)
  1. VALPROIC ACID 250MG/ML [Suspect]
     Indication: CONVULSION PROPHYLAXIS
     Dosage: 400MG Q6H OTHER
     Route: 050
     Dates: start: 20080919, end: 20080924
  2. PHENOBARBITAL [Concomitant]
  3. LEVETIRACETAM [Concomitant]
  4. OXCARBAZEPINE [Concomitant]

REACTIONS (2)
  - ABDOMINAL PAIN [None]
  - PYREXIA [None]
